FAERS Safety Report 10569223 (Version 2)
Quarter: 2014Q4

REPORT INFORMATION
  Report Type: Spontaneous
  Country: IT (occurrence: IT)
  Receive Date: 20141106
  Receipt Date: 20141230
  Transmission Date: 20150529
  Serious: Yes (Death)
  Sender: FDA-Public Use
  Company Number: IT-BAYER-2014-159543

PATIENT
  Age: 61 Year
  Sex: Female

DRUGS (6)
  1. TARGIN [Concomitant]
     Active Substance: NALOXONE HYDROCHLORIDE\OXYCODONE HYDROCHLORIDE
     Dosage: DAILY DOSE 10 MG/5MG
     Route: 048
  2. TARGIN [Concomitant]
     Active Substance: NALOXONE HYDROCHLORIDE\OXYCODONE HYDROCHLORIDE
     Dosage: DAILY DOSE 20 MG
     Route: 048
     Dates: start: 20140627
  3. SOLDESAM [Concomitant]
     Active Substance: DEXAMETHASONE
     Indication: ASTHENIA
     Dosage: DAILY DOSE 60 GTT
     Route: 048
     Dates: start: 20140627
  4. MITOMYCIN. [Concomitant]
     Active Substance: MITOMYCIN
     Indication: COLON CANCER
     Dosage: DAILY DOSE 12 MG
     Dates: start: 20140616
  5. STIVARGA [Suspect]
     Active Substance: REGORAFENIB
     Indication: COLON CANCER
     Dosage: DAILY DOSE 160 MG
     Route: 048
     Dates: start: 20140627, end: 20140711
  6. SOLDESAM [Concomitant]
     Active Substance: DEXAMETHASONE
     Indication: ASTHENIA
     Dosage: DAILY DOSE 20 GTT
     Route: 048

REACTIONS (4)
  - Mucosal inflammation [Fatal]
  - Hepatic failure [Fatal]
  - Thrombocytopenia [Fatal]
  - Acute respiratory failure [Fatal]

NARRATIVE: CASE EVENT DATE: 20140717
